FAERS Safety Report 22953744 (Version 2)
Quarter: 2023Q4

REPORT INFORMATION
  Report Type: Spontaneous
  Country: US (occurrence: US)
  Receive Date: 20230918
  Receipt Date: 20231009
  Transmission Date: 20240109
  Serious: No
  Sender: FDA-Public Use
  Company Number: US-SA-SAC20230912000099

PATIENT
  Sex: Female

DRUGS (1)
  1. DUPIXENT [Suspect]
     Active Substance: DUPILUMAB
     Dosage: 300MG FREQUENCY; OTHER
     Route: 058

REACTIONS (4)
  - Dandruff [Unknown]
  - Blepharospasm [Unknown]
  - Condition aggravated [Unknown]
  - Eyelid skin dryness [Unknown]
